FAERS Safety Report 4372651-4 (Version None)
Quarter: 2004Q2

REPORT INFORMATION
  Report Type: 
  Country: None (occurrence: None)
  Receive Date: 20040526
  Receipt Date: 20040514
  Transmission Date: 20050107
  Serious: Yes (Death)
  Sender: FDA-Public Use
  Company Number: 163-20785-04040057

PATIENT
  Age: 74 Year
  Sex: Male

DRUGS (6)
  1. THALOMID [Suspect]
     Indication: MYELODYSPLASTIC SYNDROME
     Dosage: 200 MG, DAILY, ORAL (ONE DOSE IN DEC03)
     Route: 048
  2. LIPITOR [Concomitant]
  3. LEVOXYL [Concomitant]
  4. CLONAZEPAM [Concomitant]
  5. FLUOXETINE [Concomitant]
  6. MAGNESIUM OXIDE (MAGNESIUM OXIDE) [Concomitant]

REACTIONS (5)
  - ABDOMINAL PAIN [None]
  - ANAEMIA [None]
  - DISEASE PROGRESSION [None]
  - DRUG INTOLERANCE [None]
  - FEELING ABNORMAL [None]
